FAERS Safety Report 6379538-6 (Version None)
Quarter: 2009Q3

REPORT INFORMATION
  Report Type: 
  Country: None (occurrence: None)
  Receive Date: 20090924
  Receipt Date: 20090924
  Transmission Date: 20100115
  Serious: Yes (Other)
  Sender: FDA-Public Use
  Company Number: None

PATIENT
  Age: 20 Year
  Sex: Female
  Weight: 52.1637 kg

DRUGS (2)
  1. ZICAM NASAL SWABS MATRIX INITIATIVES [Suspect]
     Indication: NASOPHARYNGITIS
     Dosage: 1 SWAB 2-3 X/DAY WHEN SIC NASAL
     Route: 045
     Dates: start: 20040901, end: 20090901
  2. ZICAM NASAL SWABS MATRIX INITIATIVES [Suspect]
     Indication: OROPHARYNGEAL PAIN
     Dosage: 1 SWAB 2-3 X/DAY WHEN SIC NASAL
     Route: 045
     Dates: start: 20040901, end: 20090901

REACTIONS (2)
  - AGEUSIA [None]
  - ANOSMIA [None]
